FAERS Safety Report 5621238-1 (Version None)
Quarter: 2008Q1

REPORT INFORMATION
  Report Type: 
  Country: None (occurrence: None)
  Receive Date: 20080114
  Receipt Date: 20070416
  Transmission Date: 20080703
  Serious: Yes (Hospitalization, Disabling)
  Sender: FDA-Public Use
  Company Number: A03200702647

PATIENT
  Age: 74 Year
  Sex: Female

DRUGS (9)
  1. PLAVIX [Suspect]
     Indication: STENT PLACEMENT
     Dosage: 75 MG QD - ORAL
     Route: 048
     Dates: start: 20050101
  2. FUROSEMIDE [Concomitant]
  3. ASPIRIN +EXTENDED RELEASE DIPYRIDAMOLE [Concomitant]
  4. ATORVASTATIN CALCIUM [Concomitant]
  5. ISOSORBIDE DINITRATE [Concomitant]
  6. OMEPRAZOLE [Concomitant]
  7. METOPROLOL TARTRATE [Concomitant]
  8. COLCHICINE [Concomitant]
  9. QUINAPRIL HCL [Concomitant]

REACTIONS (3)
  - CEREBROVASCULAR ACCIDENT [None]
  - HEADACHE [None]
  - MYOCARDIAL INFARCTION [None]
